FAERS Safety Report 19160237 (Version 1)
Quarter: 2021Q2

REPORT INFORMATION
  Report Type: Report from Study
  Country: FR (occurrence: FR)
  Receive Date: 20210420
  Receipt Date: 20210420
  Transmission Date: 20210717
  Serious: Yes (Other)
  Sender: FDA-Public Use
  Company Number: FR-EMD SERONO-9232036

PATIENT
  Sex: Female

DRUGS (1)
  1. GONAL?F [Suspect]
     Active Substance: FOLLITROPIN
     Indication: CONTROLLED OVARIAN STIMULATION
     Dates: start: 20210402

REACTIONS (5)
  - Ovarian hyperstimulation syndrome [Not Recovered/Not Resolved]
  - Adnexa uteri pain [Not Recovered/Not Resolved]
  - Limb discomfort [Unknown]
  - Blood oestrogen increased [Not Recovered/Not Resolved]
  - Pain in extremity [Unknown]

NARRATIVE: CASE EVENT DATE: 202104
